FAERS Safety Report 9209298 (Version 1)
Quarter: 2013Q2

REPORT INFORMATION
  Report Type: Spontaneous
  Country: GB (occurrence: GB)
  Receive Date: 20130404
  Receipt Date: 20130404
  Transmission Date: 20140414
  Serious: Yes (Life-Threatening)
  Sender: FDA-Public Use
  Company Number: GB-ROXANE LABORATORIES, INC.-2013-RO-00431RO

PATIENT
  Age: 77 Year
  Sex: Male

DRUGS (14)
  1. DEXAMETHASONE [Suspect]
     Indication: PLASMA CELL MYELOMA
     Dates: start: 201011
  2. CLOPIDOGREL [Suspect]
     Indication: ACUTE MYOCARDIAL INFARCTION
     Dosage: 75 MG
  3. CLOPIDOGREL [Suspect]
     Indication: ANTIPLATELET THERAPY
  4. LENALIDOMIDE [Suspect]
     Indication: PLASMA CELL MYELOMA
     Dates: start: 201011
  5. WARFARIN [Suspect]
     Indication: THROMBOSIS PROPHYLAXIS
  6. ASPIRIN [Suspect]
     Indication: ACUTE MYOCARDIAL INFARCTION
     Dosage: 75 MG
  7. ASPIRIN [Suspect]
     Indication: ANTIPLATELET THERAPY
  8. ISOSORBIDE MONONITRATE MR [Concomitant]
     Dosage: 60 MG
  9. ADIZEM SR [Concomitant]
     Dosage: 480 MG
  10. SODIUM CLODRONATE [Concomitant]
     Dosage: 1.6 G
  11. OMEPRAZOLE [Concomitant]
     Dosage: 40 MG
  12. ATORVASTATIN [Concomitant]
     Dosage: 80 MG
  13. GLYCERYL TRINITRATE [Concomitant]
     Indication: CHEST PAIN
  14. PARACETAMOL [Concomitant]

REACTIONS (2)
  - Pulmonary embolism [Recovered/Resolved]
  - Acute myocardial infarction [Recovered/Resolved]
